FAERS Safety Report 9469498 (Version 1)
Quarter: 2013Q3

REPORT INFORMATION
  Report Type: Spontaneous
  Country: US (occurrence: US)
  Receive Date: 20130822
  Receipt Date: 20130822
  Transmission Date: 20140515
  Serious: No
  Sender: FDA-Public Use
  Company Number: US-BIOGENIDEC-2013BI045087

PATIENT
  Sex: Female

DRUGS (1)
  1. AVONEX [Suspect]
     Indication: MULTIPLE SCLEROSIS
     Route: 030
     Dates: start: 20130411, end: 201307

REACTIONS (12)
  - Dehydration [Unknown]
  - Abasia [Recovered/Resolved]
  - Fall [Recovered/Resolved]
  - Urinary incontinence [Recovered/Resolved]
  - Cognitive disorder [Unknown]
  - Mobility decreased [Recovered/Resolved]
  - Feeling cold [Recovered/Resolved]
  - Gait disturbance [Unknown]
  - Depression [Unknown]
  - Pyrexia [Recovered/Resolved]
  - Headache [Recovered/Resolved]
  - Musculoskeletal stiffness [Recovered/Resolved]
